FAERS Safety Report 25300966 (Version 1)
Quarter: 2025Q2

REPORT INFORMATION
  Report Type: Spontaneous
  Country: CN (occurrence: CN)
  Receive Date: 20250512
  Receipt Date: 20250512
  Transmission Date: 20250717
  Serious: Yes (Other)
  Sender: ELI LILLY AND COMPANY
  Company Number: CN-ELI_LILLY_AND_COMPANY-CN202504025258

PATIENT
  Age: 67 Year
  Sex: Female

DRUGS (7)
  1. PEMETREXED [Suspect]
     Active Substance: PEMETREXED
     Indication: Non-small cell lung cancer
     Route: 042
  2. BEVACIZUMAB [Suspect]
     Active Substance: BEVACIZUMAB
     Indication: Non-small cell lung cancer
     Route: 042
  3. PEMBROLIZUMAB [Suspect]
     Active Substance: PEMBROLIZUMAB
     Indication: Non-small cell lung cancer
     Route: 042
  4. DEXAMETHASONE [Suspect]
     Active Substance: DEXAMETHASONE
     Indication: Non-small cell lung cancer
     Route: 065
  5. OLAPARIB [Suspect]
     Active Substance: OLAPARIB
     Indication: Non-small cell lung cancer
     Dosage: 150 MG, DAILY
     Route: 048
  6. OLAPARIB [Suspect]
     Active Substance: OLAPARIB
     Dosage: 300 MG, BID
     Route: 048
  7. FIRMONERTINIB MESYLATE [Suspect]
     Active Substance: FIRMONERTINIB MESYLATE
     Indication: Non-small cell lung cancer
     Dosage: 160 MG, DAILY
     Route: 065

REACTIONS (4)
  - Metastases to meninges [Unknown]
  - Myelosuppression [Recovered/Resolved]
  - Infection [Recovered/Resolved]
  - Dysphagia [Unknown]
